FAERS Safety Report 23592872 (Version 1)
Quarter: 2024Q1

REPORT INFORMATION
  Report Type: Spontaneous
  Country: US (occurrence: None)
  Receive Date: 20240303
  Receipt Date: 20240303
  Transmission Date: 20240410
  Serious: Yes (Hospitalization)
  Sender: FDA-Public Use
  Company Number: None

PATIENT
  Age: 62 Year
  Sex: Female
  Weight: 71.1 kg

DRUGS (14)
  1. OZEMPIC [Suspect]
     Active Substance: SEMAGLUTIDE
     Indication: Diabetes mellitus
     Dates: end: 20240123
  2. OZEMPIC [Suspect]
     Active Substance: SEMAGLUTIDE
     Indication: Anticoagulant therapy
  3. BRILINTA [Suspect]
     Active Substance: TICAGRELOR
  4. Stimulator [Concomitant]
  5. VENLAFAXINE [Concomitant]
  6. SYMPROIC [Concomitant]
     Active Substance: NALDEMEDINE
  7. TIZANIDINE [Concomitant]
     Active Substance: TIZANIDINE
  8. TRADJENTA [Concomitant]
     Active Substance: LINAGLIPTIN
  9. ASPIRIN [Concomitant]
     Active Substance: ASPIRIN
  10. CLONIDINE [Concomitant]
     Active Substance: CLONIDINE
  11. METOPROLOL TARTRATE [Concomitant]
     Active Substance: METOPROLOL TARTRATE
  12. aosartan [Concomitant]
  13. levorphanoll [Concomitant]
  14. STOOL SOFTENER (DOCUSATE) [Concomitant]
     Active Substance: DOCUSATE

REACTIONS (2)
  - Gallbladder disorder [None]
  - Post procedural haemorrhage [None]

NARRATIVE: CASE EVENT DATE: 20240127
